FAERS Safety Report 20193412 (Version 2)
Quarter: 2022Q1

REPORT INFORMATION
  Report Type: Spontaneous
  Country: GR (occurrence: GR)
  Receive Date: 20211216
  Receipt Date: 20220125
  Transmission Date: 20220423
  Serious: Yes (Hospitalization)
  Sender: FDA-Public Use
  Company Number: GR-CELGENE-GRC-20211201398

PATIENT
  Age: 58 Year
  Sex: Female

DRUGS (15)
  1. LENALIDOMIDE [Suspect]
     Active Substance: LENALIDOMIDE
     Indication: Plasma cell myeloma
     Route: 048
     Dates: start: 20210805, end: 20211116
  2. ISATUXIMAB [Suspect]
     Active Substance: ISATUXIMAB
     Indication: Plasma cell myeloma
     Route: 065
     Dates: start: 20210805, end: 20211111
  3. CARFILZOMIB [Suspect]
     Active Substance: CARFILZOMIB
     Indication: Plasma cell myeloma
     Route: 065
     Dates: start: 20210805, end: 20211116
  4. DEXAMETHASONE [Suspect]
     Active Substance: DEXAMETHASONE
     Indication: Plasma cell myeloma
     Route: 065
     Dates: start: 20210805, end: 20211118
  5. Tinzaparine sodium [Concomitant]
     Indication: Prophylaxis
     Route: 065
     Dates: start: 20210805, end: 20211130
  6. Tinzaparine sodium [Concomitant]
     Indication: Pneumonia
     Dosage: 14000 IU (INTERNATIONAL UNIT)
     Route: 065
     Dates: start: 20211130, end: 20211201
  7. LEVOFLOXACIN [Concomitant]
     Active Substance: LEVOFLOXACIN
     Indication: Prophylaxis
     Route: 065
     Dates: start: 20210805, end: 20211130
  8. Paracetamol/apotel [Concomitant]
     Indication: Prophylaxis
     Route: 065
     Dates: start: 20210805
  9. Dimetindene/fenistil [Concomitant]
     Indication: Prophylaxis
     Route: 065
     Dates: start: 20210805
  10. VALACYCLOVIR [Concomitant]
     Active Substance: VALACYCLOVIR HYDROCHLORIDE
     Indication: Prophylaxis
     Route: 065
     Dates: start: 20210805
  11. HYDROXYCHLOROQUINE [Concomitant]
     Active Substance: HYDROXYCHLOROQUINE
     Indication: Systemic lupus erythematosus
     Route: 065
     Dates: start: 20210601
  12. OMEPRAZOLE [Concomitant]
     Active Substance: OMEPRAZOLE
     Indication: Prophylaxis
     Route: 065
     Dates: start: 20210805
  13. MONTELUKAST SODIUM [Concomitant]
     Active Substance: MONTELUKAST SODIUM
     Indication: Prophylaxis
     Route: 065
     Dates: start: 20210805
  14. SALMETEROL [Concomitant]
     Active Substance: SALMETEROL
     Indication: Prophylaxis
     Route: 065
     Dates: start: 20210805
  15. TENOFOVIR [Concomitant]
     Active Substance: TENOFOVIR
     Indication: Prophylaxis
     Route: 065
     Dates: start: 20210807

REACTIONS (1)
  - COVID-19 pneumonia [Recovered/Resolved]

NARRATIVE: CASE EVENT DATE: 20211130
